FAERS Safety Report 8308262-5 (Version None)
Quarter: 2012Q2

REPORT INFORMATION
  Report Type: 
  Country: None (occurrence: None)
  Receive Date: 20120424
  Receipt Date: 20110730
  Transmission Date: 20120825
  Serious: Yes (Hospitalization)
  Sender: FDA-Public Use
  Company Number: LT-UCBSA-8052619

PATIENT
  Age: 58 Year
  Sex: Female
  Weight: 102.4 kg

DRUGS (8)
  1. MELOXICAM [Concomitant]
     Indication: RHEUMATOID ARTHRITIS
     Route: 048
     Dates: start: 20050615
  2. CERTOLIZUMAB PEGOL [Suspect]
     Route: 058
     Dates: start: 20060419, end: 20071212
  3. CERTOLIZUMAB PEGOL [Suspect]
     Dosage: - NR OF DOSES :47
     Route: 058
     Dates: start: 20071212, end: 20090925
  4. OMEPRAZOLE [Concomitant]
     Indication: GASTROOESOPHAGEAL REFLUX DISEASE
     Route: 048
     Dates: start: 20070322
  5. METHYLPREDNISOLONE [Concomitant]
     Indication: RHEUMATOID ARTHRITIS
     Route: 048
     Dates: start: 20050404
  6. CERTOLIZUMAB PEGOL [Suspect]
     Indication: RHEUMATOID ARTHRITIS
     Route: 058
     Dates: start: 20051130, end: 20060322
  7. METHOTREXATE [Concomitant]
     Indication: RHEUMATOID ARTHRITIS
     Route: 048
     Dates: start: 20050304
  8. ACCUZIDE [Concomitant]
     Indication: HYPERTENSION
     Dosage: 1 DOSAGE FORM
     Route: 048
     Dates: start: 20051019

REACTIONS (1)
  - CELLULITIS [None]
